FAERS Safety Report 6723364-2 (Version None)
Quarter: 2010Q2

REPORT INFORMATION
  Report Type: 
  Country: None (occurrence: None)
  Receive Date: 20100511
  Receipt Date: 20100416
  Transmission Date: 20101027
  Serious: Yes (Hospitalization)
  Sender: FDA-Public Use
  Company Number: JP-SOLVAY-00310001314

PATIENT
  Age: 14 Year
  Sex: Female

DRUGS (7)
  1. LUVOX [Suspect]
     Indication: DEPRESSION
     Dosage: 50 MILLIGRAM(S), ORAL
     Route: 048
     Dates: start: 20100210, end: 20100210
  2. LUVOX [Suspect]
     Indication: DEPRESSION
     Dosage: 50 MILLIGRAM(S), ORAL
     Route: 048
     Dates: start: 20091120, end: 20100220
  3. RISPERDAL [Suspect]
     Indication: DEPRESSION
     Dosage: 1 MILLIGRAM(S), ORAL
     Route: 048
     Dates: start: 20100210, end: 20100210
  4. RISPERDAL [Suspect]
     Indication: DEPRESSION
     Dosage: 1 MILLIGRAM(S), ORAL
     Route: 048
     Dates: start: 20091218, end: 20100210
  5. MEILAX (ETHYL LOFLAZEPATE) [Suspect]
     Indication: DEPRESSION
     Dosage: 1 MILLIGRAM(S), ORAL
     Route: 048
     Dates: start: 20100210, end: 20100210
  6. MEILAX (ETHYL LOFLAZEPATE) [Suspect]
     Indication: DEPRESSION
     Dosage: 1 MILLIGRAM(S), ORAL
     Route: 048
     Dates: start: 20091120, end: 20100210
  7. IBUPROFEN TABLETS [Concomitant]

REACTIONS (13)
  - ALANINE AMINOTRANSFERASE INCREASED [None]
  - ANTINUCLEAR ANTIBODY POSITIVE [None]
  - ASPARTATE AMINOTRANSFERASE INCREASED [None]
  - BLOOD ALKALINE PHOSPHATASE INCREASED [None]
  - BLOOD CALCIUM DECREASED [None]
  - BLOOD LACTATE DEHYDROGENASE INCREASED [None]
  - BLOOD UREA DECREASED [None]
  - GAMMA-GLUTAMYLTRANSFERASE INCREASED [None]
  - HAEMATOCRIT DECREASED [None]
  - HAEMOGLOBIN DECREASED [None]
  - MULTIPLE DRUG OVERDOSE INTENTIONAL [None]
  - PROTHROMBIN TIME PROLONGED [None]
  - SUICIDE ATTEMPT [None]
